FAERS Safety Report 5218498-8 (Version None)
Quarter: 2007Q1

REPORT INFORMATION
  Report Type: 
  Country: None (occurrence: None)
  Receive Date: 20070123
  Receipt Date: 20070123
  Transmission Date: 20070707
  Serious: Yes (Hospitalization)
  Sender: FDA-Public Use
  Company Number: None

PATIENT
  Age: 57 Year
  Sex: Female
  Weight: 61.2356 kg

DRUGS (7)
  1. FLUDARABINE [Suspect]
     Indication: MALIGNANT MELANOMA
     Dosage: 29MG IV X 3 DAYS
     Route: 042
     Dates: start: 20061127, end: 20061201
  2. GP100 VACCINE [Suspect]
     Indication: MALIGNANT MELANOMA
     Dosage: 1MG SQ EVERY 2 WEEKS
     Route: 058
     Dates: start: 20061204, end: 20070102
  3. COMPAZINE [Concomitant]
  4. PROTONIX [Concomitant]
  5. MORPHINE SULFATE [Concomitant]
  6. MS CONTIN [Concomitant]
  7. IBUPROFEN [Concomitant]

REACTIONS (1)
  - INTESTINAL OBSTRUCTION [None]
